FAERS Safety Report 6841515-6 (Version None)
Quarter: 2010Q3

REPORT INFORMATION
  Report Type: 
  Country: None (occurrence: None)
  Receive Date: 20100714
  Receipt Date: 20070719
  Transmission Date: 20110219
  Serious: No
  Sender: FDA-Public Use
  Company Number: US-PFIZER INC-2007057431

PATIENT
  Sex: Female
  Weight: 66 kg

DRUGS (2)
  1. CHANTIX [Suspect]
     Indication: SMOKING CESSATION THERAPY
     Dates: start: 20070601
  2. OTHER DERMATOLOGICAL PREPARATIONS [Suspect]
     Indication: TANNING
     Dates: start: 20070705

REACTIONS (5)
  - ABNORMAL DREAMS [None]
  - HYPERSENSITIVITY [None]
  - ORGASM ABNORMAL [None]
  - PHOTOSENSITIVITY REACTION [None]
  - RASH MACULAR [None]
